FAERS Safety Report 18324765 (Version 1)
Quarter: 2020Q3

REPORT INFORMATION
  Report Type: Spontaneous
  Country: US (occurrence: US)
  Receive Date: 20200929
  Receipt Date: 20200929
  Transmission Date: 20201103
  Serious: Yes (Death)
  Sender: FDA-Public Use
  Company Number: US-AKRON, INC.-2092271

PATIENT
  Age: 26 Year
  Sex: Male

DRUGS (2)
  1. PHENYLEPHRINE HYDROCHLORIDE. [Suspect]
     Active Substance: PHENYLEPHRINE HYDROCHLORIDE
     Indication: HAEMORRHAGE
     Route: 061
  2. LIDOCAINE. [Suspect]
     Active Substance: LIDOCAINE
     Route: 050

REACTIONS (4)
  - Bradycardia [Fatal]
  - Pulmonary oedema [Fatal]
  - Off label use [Fatal]
  - Cardiac arrest [Fatal]
